FAERS Safety Report 9557776 (Version 1)
Quarter: 2013Q3

REPORT INFORMATION
  Report Type: Spontaneous
  Country: BE (occurrence: None)
  Receive Date: 20130911
  Receipt Date: 20130911
  Transmission Date: 20140515
  Serious: Yes (Death, Hospitalization)
  Sender: FDA-Public Use
  Company Number: 2013-01289

PATIENT
  Age: 65 Year
  Sex: Female

DRUGS (2)
  1. LORAZEPAM (UNKNOWN) [Suspect]
     Indication: PRODUCT USED FOR UNKNOWN INDICATION
     Dosage: UNKNOWN (40 MG, UNKNOWN), UNKNOWN
  2. VENLAFAXINE [Suspect]
     Indication: PRODUCT USED FOR UNKNOWN INDICATION
     Dosage: UNKNOWN (7000 MG, UNKNOWN), UNKNOWN

REACTIONS (2)
  - Overdose [None]
  - Cardiotoxicity [None]
